FAERS Safety Report 14422378 (Version 4)
Quarter: 2024Q1

REPORT INFORMATION
  Report Type: Report from Study
  Country: GB (occurrence: GB)
  Receive Date: 20180123
  Receipt Date: 20240131
  Transmission Date: 20240410
  Serious: Yes (Hospitalization)
  Sender: FDA-Public Use
  Company Number: GB-ABBVIE-18P-167-2217153-00

PATIENT
  Age: 16 Year
  Sex: Female

DRUGS (43)
  1. HUMIRA [Suspect]
     Active Substance: ADALIMUMAB
     Indication: Crohn^s disease
     Route: 058
     Dates: start: 20170112, end: 20170727
  2. HUMIRA [Suspect]
     Active Substance: ADALIMUMAB
     Route: 058
     Dates: start: 201710, end: 20180104
  3. AZATHIOPRINE [Suspect]
     Active Substance: AZATHIOPRINE
     Indication: Crohn^s disease
     Route: 048
     Dates: start: 20090401
  4. AZATHIOPRINE [Suspect]
     Active Substance: AZATHIOPRINE
     Indication: Crohn^s disease
     Route: 048
     Dates: start: 20160831, end: 20161211
  5. AZATHIOPRINE [Suspect]
     Active Substance: AZATHIOPRINE
     Indication: Crohn^s disease
     Route: 048
     Dates: start: 20161212, end: 201708
  6. CIPROFLOXACIN [Concomitant]
     Active Substance: CIPROFLOXACIN
     Indication: Crohn^s disease
     Route: 048
     Dates: start: 20161109, end: 20170107
  7. CIPROFLOXACIN [Concomitant]
     Active Substance: CIPROFLOXACIN
     Indication: Crohn^s disease
     Route: 040
     Dates: start: 20170107, end: 20170112
  8. CIPROFLOXACIN [Concomitant]
     Active Substance: CIPROFLOXACIN
     Indication: Crohn^s disease
     Route: 048
     Dates: start: 20170112, end: 20170518
  9. CIPROFLOXACIN [Concomitant]
     Active Substance: CIPROFLOXACIN
     Indication: Crohn^s disease
     Route: 040
     Dates: start: 20170726, end: 20170810
  10. CIPROFLOXACIN [Concomitant]
     Active Substance: CIPROFLOXACIN
     Indication: Crohn^s disease
     Route: 048
     Dates: start: 20170810, end: 20170827
  11. CIPROFLOXACIN [Concomitant]
     Active Substance: CIPROFLOXACIN
     Indication: Crohn^s disease
     Route: 040
     Dates: start: 20170827, end: 20170907
  12. CIPROFLOXACIN [Concomitant]
     Active Substance: CIPROFLOXACIN
     Indication: Crohn^s disease
     Route: 048
     Dates: start: 20170907, end: 20171027
  13. CIPROFLOXACIN [Concomitant]
     Active Substance: CIPROFLOXACIN
     Indication: Crohn^s disease
     Route: 040
     Dates: start: 20171027, end: 20171030
  14. CIPROFLOXACIN [Concomitant]
     Active Substance: CIPROFLOXACIN
     Indication: Crohn^s disease
     Route: 048
     Dates: start: 20171031
  15. CIPROFLOXACIN [Concomitant]
     Active Substance: CIPROFLOXACIN
     Indication: Crohn^s disease
     Route: 048
     Dates: start: 20171222, end: 20171223
  16. MOVICOL [Concomitant]
     Active Substance: POLYETHYLENE GLYCOL 3350\POTASSIUM CHLORIDE\SODIUM BICARBONATE\SODIUM CHLORIDE
     Indication: Crohn^s disease
     Route: 048
     Dates: start: 20161109
  17. FERROUS SULFATE [Concomitant]
     Active Substance: FERROUS SULFATE
     Indication: Crohn^s disease
     Route: 048
     Dates: start: 20121003
  18. OMEPRAZOLE [Concomitant]
     Active Substance: OMEPRAZOLE
     Indication: Crohn^s disease
     Route: 040
     Dates: start: 20170107, end: 20170112
  19. OMEPRAZOLE [Concomitant]
     Active Substance: OMEPRAZOLE
     Indication: Crohn^s disease
     Route: 048
     Dates: start: 20170828
  20. DERMOL [Concomitant]
     Active Substance: BENZALKONIUM CHLORIDE\CHLORHEXIDINE HYDROCHLORIDE\ISOPROPYL MYRISTATE\PARAFFIN
     Indication: Vasculitis
     Dosage: LOTION
     Route: 061
     Dates: start: 2016
  21. KETOCONAZOLE [Concomitant]
     Active Substance: KETOCONAZOLE
     Indication: Fungal skin infection
     Route: 061
     Dates: start: 20170731
  22. TRIMOVATE [Concomitant]
     Active Substance: CLOBETASONE BUTYRATE\NYSTATIN\OXYTETRACYCLINE CALCIUM
     Indication: Rash
     Route: 061
     Dates: start: 20170729
  23. DOXYCYCLINE [Concomitant]
     Active Substance: DOXYCYCLINE
     Indication: Vasculitis
     Dosage: MOUTHWASH
     Dates: start: 20171027
  24. DOXYCYCLINE [Concomitant]
     Active Substance: DOXYCYCLINE
     Indication: Vasculitis
     Route: 048
     Dates: start: 20171222
  25. BETAMETHASONE [Concomitant]
     Active Substance: BETAMETHASONE\BETAMETHASONE DIPROPIONATE
     Indication: Vasculitis
     Dosage: MOUTHWASH
     Dates: start: 20171028
  26. BETAMETHASONE [Concomitant]
     Active Substance: BETAMETHASONE\BETAMETHASONE DIPROPIONATE
     Indication: Vasculitis
     Route: 048
     Dates: start: 20171222
  27. CALCIUM CARBONATE\CHOLECALCIFEROL [Concomitant]
     Active Substance: CALCIUM CARBONATE\CHOLECALCIFEROL
     Indication: Vitamin supplementation
     Route: 048
     Dates: start: 20171028
  28. CALCIUM CARBONATE\CHOLECALCIFEROL [Concomitant]
     Active Substance: CALCIUM CARBONATE\CHOLECALCIFEROL
     Indication: Vitamin supplementation
     Route: 048
     Dates: start: 20171222
  29. BETAMETHASONE DIPROPIONATE\CLOTRIMAZOLE [Concomitant]
     Active Substance: BETAMETHASONE DIPROPIONATE\CLOTRIMAZOLE
     Indication: Vasculitis
     Dosage: TIME INTERVAL: AS NECESSARY
     Route: 061
     Dates: start: 20171028
  30. FRESUBIN [Concomitant]
     Active Substance: AMINO ACIDS\DEXTROSE\ELECTROLYTES NOS\SOYBEAN OIL\VITAMINS
     Indication: Hypophagia
     Route: 048
     Dates: start: 20171028
  31. CHLORHEXIDINE [Concomitant]
     Active Substance: CHLORHEXIDINE\CHLORHEXIDINE GLUCONATE
     Indication: Vasculitis
     Dosage: MOUTHWASH? 0.2%
     Route: 048
     Dates: start: 20171030
  32. CHLORHEXIDINE [Concomitant]
     Active Substance: CHLORHEXIDINE\CHLORHEXIDINE GLUCONATE
     Indication: Vasculitis
     Dosage: 0.2%
     Route: 048
     Dates: start: 20171222
  33. PROTOPIC [Concomitant]
     Active Substance: TACROLIMUS
     Indication: Vasculitis
     Dosage: ALTERNATE DAYS
     Route: 061
     Dates: start: 20171130
  34. EUMOVATE [Concomitant]
     Active Substance: CLOBETASONE BUTYRATE
     Indication: Vasculitis
     Route: 061
     Dates: start: 20171130
  35. TRIMEPRAZINE [Concomitant]
     Active Substance: TRIMEPRAZINE
     Indication: Crohn^s disease
     Route: 048
     Dates: start: 20171222, end: 20171223
  36. METRONIDAZOLE [Concomitant]
     Active Substance: METRONIDAZOLE
     Indication: Crohn^s disease
     Route: 048
     Dates: start: 20171222, end: 20171223
  37. METRONIDAZOLE [Concomitant]
     Active Substance: METRONIDAZOLE
     Indication: Crohn^s disease
     Route: 048
     Dates: start: 20171229
  38. METRONIDAZOLE [Concomitant]
     Active Substance: METRONIDAZOLE
     Indication: Crohn^s disease
     Route: 048
     Dates: start: 20170112, end: 20170418
  39. METRONIDAZOLE [Concomitant]
     Active Substance: METRONIDAZOLE
     Indication: Crohn^s disease
     Route: 040
     Dates: start: 20170726, end: 20170810
  40. METRONIDAZOLE [Concomitant]
     Active Substance: METRONIDAZOLE
     Indication: Crohn^s disease
     Route: 048
     Dates: start: 20170907, end: 20171031
  41. HYDROUS [Concomitant]
     Indication: Crohn^s disease
     Dosage: TOPICAL CREAM
     Route: 061
     Dates: start: 20171222
  42. NYSTATIN [Concomitant]
     Active Substance: NYSTATIN
     Indication: Crohn^s disease
     Route: 048
     Dates: start: 20171222
  43. GENTAMICIN [Concomitant]
     Active Substance: GENTAMICIN
     Indication: Crohn^s disease
     Route: 048
     Dates: start: 20171229, end: 20180101

REACTIONS (2)
  - Anal fistula [Recovered/Resolved]
  - Erythema multiforme [Recovered/Resolved]

NARRATIVE: CASE EVENT DATE: 20180108
